FAERS Safety Report 5623691-6 (Version None)
Quarter: 2008Q1

REPORT INFORMATION
  Report Type: 
  Country: None (occurrence: None)
  Receive Date: 20080212
  Receipt Date: 20080128
  Transmission Date: 20080703
  Serious: Yes (Death)
  Sender: FDA-Public Use
  Company Number: GB-GENENTECH-255410

PATIENT
  Age: 58 Year
  Sex: Female

DRUGS (3)
  1. HERCEPTIN [Suspect]
     Indication: BREAST CANCER
     Dosage: 430 MG, Q3W
  2. CAPECITABINE [Suspect]
     Indication: BREAST CANCER
     Dosage: 0.9 G, BID
  3. EPIRUBICIN [Suspect]
     Indication: BREAST CANCER
     Dosage: 160 MG, 1/MONTH

REACTIONS (2)
  - CARDIAC ARREST [None]
  - VENTRICULAR FIBRILLATION [None]
